FAERS Safety Report 15921984 (Version 1)
Quarter: 2019Q1

REPORT INFORMATION
  Report Type: Other
  Country: RO (occurrence: RO)
  Receive Date: 20190206
  Receipt Date: 20190206
  Transmission Date: 20190417
  Serious: Yes (Hospitalization, Other)
  Sender: FDA-Public Use
  Company Number: RO-ACTELION-A-CH2019-185541

PATIENT
  Age: 25 Year
  Sex: Female

DRUGS (2)
  1. BOSENTAN. [Suspect]
     Active Substance: BOSENTAN
     Indication: PULMONARY HYPERTENSION
     Dosage: 125 MG, BID
     Route: 048
  2. SILDENAFIL CITRATE. [Suspect]
     Active Substance: SILDENAFIL CITRATE
     Indication: PULMONARY HYPERTENSION
     Dosage: 20 MG, TID
     Route: 048

REACTIONS (16)
  - Oxygen saturation decreased [Unknown]
  - General physical condition abnormal [Unknown]
  - Cyanosis [Unknown]
  - Cough [Unknown]
  - Headache [Unknown]
  - Adrenal neoplasm [Unknown]
  - Haemoptysis [Unknown]
  - Fatigue [Unknown]
  - Phlebotomy [Unknown]
  - Iron deficiency [Unknown]
  - Dyspnoea [Recovering/Resolving]
  - Vertigo [Unknown]
  - Myalgia [Unknown]
  - Drug ineffective [None]
  - Ocular hyperaemia [Unknown]
  - Thrombocytopenia [Recovered/Resolved]
